FAERS Safety Report 11598112 (Version 1)
Quarter: 2015Q4

REPORT INFORMATION
  Report Type: Spontaneous
  Country: US (occurrence: US)
  Receive Date: 20151006
  Receipt Date: 20151006
  Transmission Date: 20160304
  Serious: No
  Sender: FDA-Public Use
  Company Number: US-ROCHE-1607092

PATIENT
  Age: 52 Year
  Sex: Male

DRUGS (1)
  1. ERIVEDGE [Suspect]
     Active Substance: VISMODEGIB
     Indication: NEOPLASM MALIGNANT
     Route: 048

REACTIONS (3)
  - Muscle spasms [Unknown]
  - Feeling cold [Unknown]
  - Vomiting [Unknown]

NARRATIVE: CASE EVENT DATE: 20150709
